FAERS Safety Report 10453816 (Version 1)
Quarter: 2014Q3

REPORT INFORMATION
  Report Type: Spontaneous
  Country: US (occurrence: US)
  Receive Date: 20140915
  Receipt Date: 20140915
  Transmission Date: 20150326
  Serious: No
  Sender: FDA-Public Use
  Company Number: US-BRISTOL-MYERS SQUIBB COMPANY-21292669

PATIENT
  Age: 76 Year
  Sex: Female
  Weight: 117.91 kg

DRUGS (5)
  1. VITAMIN [Concomitant]
     Active Substance: VITAMINS
  2. ZETIA [Concomitant]
     Active Substance: EZETIMIBE
  3. DIOVAN [Concomitant]
     Active Substance: VALSARTAN
  4. LEVOTHYROXINE [Concomitant]
     Active Substance: LEVOTHYROXINE
  5. ELIQUIS [Suspect]
     Active Substance: APIXABAN

REACTIONS (1)
  - Myalgia [Unknown]
